FAERS Safety Report 6841340-6 (Version None)
Quarter: 2010Q3

REPORT INFORMATION
  Report Type: 
  Country: None (occurrence: None)
  Receive Date: 20100714
  Receipt Date: 20070803
  Transmission Date: 20110219
  Serious: No
  Sender: FDA-Public Use
  Company Number: US-PFIZER INC-2007055083

PATIENT
  Sex: Female
  Weight: 86.2 kg

DRUGS (2)
  1. CHANTIX [Suspect]
     Indication: SMOKING CESSATION THERAPY
     Dates: start: 20070601, end: 20070625
  2. LEXAPRO [Interacting]
     Indication: DEPRESSION

REACTIONS (3)
  - ANXIETY [None]
  - DEPRESSION [None]
  - DRUG INTERACTION [None]
